FAERS Safety Report 5730768-3 (Version None)
Quarter: 2008Q2

REPORT INFORMATION
  Report Type: 
  Country: None (occurrence: None)
  Receive Date: 20080505
  Receipt Date: 20080421
  Transmission Date: 20081010
  Serious: Yes (Hospitalization)
  Sender: FDA-Public Use
  Company Number: 100#08#2008-02380

PATIENT
  Age: 2 Year
  Sex: Female

DRUGS (5)
  1. METHOTREXATE [Suspect]
     Indication: JUVENILE ARTHRITIS
     Dosage: 5 MG WEEK (~12 MG/M2)  ORAL, 7.5 MG WEEK (~17.5 MG/M2) ORAL
     Route: 048
  2. METHOTREXATE [Suspect]
     Indication: JUVENILE ARTHRITIS
     Dosage: 5 MG WEEK (~12 MG/M2)  ORAL, 7.5 MG WEEK (~17.5 MG/M2) ORAL
     Route: 048
  3. NAPROXEN [Suspect]
  4. FOLIC ACID [Concomitant]
  5. CORTICOSTEROIDS (CORTICOSTEROIDS) [Concomitant]

REACTIONS (9)
  - AMMONIA INCREASED [None]
  - DRUG INTERACTION [None]
  - DRUG TOXICITY [None]
  - HEPATITIS [None]
  - HEPATOMEGALY [None]
  - HYPOGLYCAEMIA [None]
  - LETHARGY [None]
  - RESPIRATORY DISORDER [None]
  - VOMITING [None]
